FAERS Safety Report 13784183 (Version 3)
Quarter: 2017Q3

REPORT INFORMATION
  Report Type: Spontaneous
  Country: US (occurrence: US)
  Receive Date: 20170724
  Receipt Date: 20170830
  Transmission Date: 20171127
  Serious: Yes (Hospitalization)
  Sender: FDA-Public Use
  Company Number: US-ACTELION-A-US2017-156956

PATIENT
  Age: 58 Year
  Sex: Male
  Weight: 60.77 kg

DRUGS (2)
  1. REVATIO [Concomitant]
     Active Substance: SILDENAFIL CITRATE
  2. VELETRI [Suspect]
     Active Substance: EPOPROSTENOL
     Indication: PULMONARY ARTERIAL HYPERTENSION
     Dosage: 24 NG/KG, PER MIN
     Route: 042

REACTIONS (6)
  - Dyspnoea [Unknown]
  - Palpitations [Unknown]
  - Cardiac failure [Unknown]
  - Haemoptysis [Unknown]
  - Fluid retention [Unknown]
  - Dyspnoea exertional [Unknown]
